FAERS Safety Report 9098097 (Version 1)
Quarter: 2013Q1

REPORT INFORMATION
  Report Type: Spontaneous
  Country: CA (occurrence: CA)
  Receive Date: 20130213
  Receipt Date: 20130213
  Transmission Date: 20140127
  Serious: Yes (Hospitalization)
  Sender: FDA-Public Use
  Company Number: CA-ELI_LILLY_AND_COMPANY-CA201302001956

PATIENT
  Age: 79 Year
  Sex: Female

DRUGS (7)
  1. FORTEO [Suspect]
     Indication: OSTEOPOROSIS
     Dosage: 20 UG, QD
     Route: 058
     Dates: start: 20121029
  2. CALCIUM + VITAMIN D [Concomitant]
  3. ARICEPT [Concomitant]
  4. OMEPRAZOLE [Concomitant]
  5. VITALUX [Concomitant]
  6. CITALOPRAM [Concomitant]
  7. DOCUSATE SODIUM [Concomitant]
     Dosage: UNK, PRN

REACTIONS (2)
  - Spinal fracture [Not Recovered/Not Resolved]
  - Drug dose omission [Recovered/Resolved]
